FAERS Safety Report 13937165 (Version 1)
Quarter: 2017Q3

REPORT INFORMATION
  Report Type: Spontaneous
  Country: US (occurrence: US)
  Receive Date: 20170905
  Receipt Date: 20170905
  Transmission Date: 20171127
  Serious: Yes (Life-Threatening)
  Sender: FDA-Public Use
  Company Number: PHHY2017US129069

PATIENT
  Age: 56 Year
  Sex: Male

DRUGS (1)
  1. RIFAMPICIN [Suspect]
     Active Substance: RIFAMPIN
     Indication: LATENT TUBERCULOSIS
     Route: 065

REACTIONS (5)
  - Fatigue [Unknown]
  - Petechiae [Unknown]
  - Aplastic anaemia [Unknown]
  - Gingival bleeding [Unknown]
  - Tachycardia [Unknown]
